FAERS Safety Report 8249341-0 (Version None)
Quarter: 2012Q2

REPORT INFORMATION
  Report Type: 
  Country: None (occurrence: None)
  Receive Date: 20120402
  Receipt Date: 20120321
  Transmission Date: 20120825
  Serious: Yes (Hospitalization)
  Sender: FDA-Public Use
  Company Number: JP-JNJFOC-20110806835

PATIENT
  Age: 52 Year
  Sex: Male
  Weight: 61 kg

DRUGS (18)
  1. ASACOL [Concomitant]
     Indication: COLITIS ULCERATIVE
     Route: 048
     Dates: start: 20110629
  2. PREDNISOLONE [Concomitant]
     Route: 048
     Dates: start: 20110921, end: 20111011
  3. PREDNISOLONE [Suspect]
     Route: 048
     Dates: start: 20110713, end: 20110726
  4. PENTASA [Concomitant]
     Indication: COLITIS ULCERATIVE
     Route: 048
     Dates: end: 20110628
  5. PREDONEMA [Concomitant]
     Indication: COLITIS ULCERATIVE
     Route: 054
     Dates: end: 20110719
  6. PREDNISOLONE [Concomitant]
     Route: 048
     Dates: start: 20110810, end: 20110830
  7. REMICADE [Suspect]
     Route: 042
     Dates: start: 20111207
  8. REMICADE [Suspect]
     Route: 042
     Dates: start: 20111012
  9. REMICADE [Suspect]
     Route: 042
     Dates: start: 20110817
  10. REMICADE [Suspect]
     Route: 042
     Dates: start: 20110706
  11. PREDNISOLONE [Concomitant]
     Route: 048
     Dates: start: 20110831, end: 20110920
  12. PREDNISOLONE [Suspect]
     Route: 048
     Dates: start: 20110629, end: 20110712
  13. PREDNISOLONE [Concomitant]
     Route: 048
     Dates: start: 20110727, end: 20110809
  14. REMICADE [Suspect]
     Indication: COLITIS ULCERATIVE
     Route: 042
     Dates: start: 20120215
  15. REMICADE [Suspect]
     Dosage: 2 TOTAL INFUSIONS
     Route: 042
     Dates: start: 20110720
  16. PREDNISOLONE [Suspect]
     Indication: COLITIS ULCERATIVE
     Route: 048
     Dates: start: 20110614, end: 20110628
  17. ISONIAZID [Concomitant]
     Indication: ANTIBIOTIC PROPHYLAXIS
     Dates: start: 20110706
  18. OMEPRAZOLE [Concomitant]
     Indication: PROPHYLAXIS
     Route: 048
     Dates: start: 20110713

REACTIONS (2)
  - ANAEMIA [None]
  - PNEUMOCYSTIS JIROVECI PNEUMONIA [None]
